FAERS Safety Report 17707752 (Version 5)
Quarter: 2020Q3

REPORT INFORMATION
  Report Type: Spontaneous
  Country: US (occurrence: US)
  Receive Date: 20200424
  Receipt Date: 20200715
  Transmission Date: 20201102
  Serious: Yes (Other)
  Sender: FDA-Public Use
  Company Number: US-TEVA-2020-US-1225648

PATIENT
  Age: 54 Year
  Sex: Male

DRUGS (17)
  1. CLOTRIMAZOLE ANTIFUNGAL [Concomitant]
     Active Substance: CLOTRIMAZOLE
     Dosage: ANTIFUNGAL
  2. FENTANYL. [Concomitant]
     Active Substance: FENTANYL
  3. OXYCODONE HYDROCHLORIDE. [Concomitant]
     Active Substance: OXYCODONE HYDROCHLORIDE
  4. QUESTRAN [Concomitant]
     Active Substance: CHOLESTYRAMINE
  5. VENOFER [Concomitant]
     Active Substance: IRON SUCROSE
  6. METHYLCOBALAMINE [Concomitant]
     Active Substance: METHYLCOBALAMIN
  7. OCTREOTIDE ACETATE. [Concomitant]
     Active Substance: OCTREOTIDE ACETATE
  8. ONDANSETRON HCL [Concomitant]
     Active Substance: ONDANSETRON HYDROCHLORIDE
  9. POLY?IRON 150 [Concomitant]
  10. STELARA [Concomitant]
     Active Substance: USTEKINUMAB
  11. MAGONATE [Concomitant]
     Active Substance: MAGNESIUM CARBONATE
  12. PREDNISONE. [Concomitant]
     Active Substance: PREDNISONE
  13. BOSULIF [Concomitant]
     Active Substance: BOSUTINIB MONOHYDRATE
  14. POTASSIUM CHLORIDE. [Concomitant]
     Active Substance: POTASSIUM CHLORIDE
  15. SYNRIBO [Suspect]
     Active Substance: OMACETAXINE MEPESUCCINATE
     Indication: CHRONIC MYELOID LEUKAEMIA
     Dosage: DOSAGE: 2.2MG/0.63ML, BID X 14 DAYS
     Route: 065
     Dates: start: 20200411
  16. SYNRIBO [Suspect]
     Active Substance: OMACETAXINE MEPESUCCINATE
     Dosage: DOSAGE: 2.1MG/0.6ML?QD SUBQ ON MON,WED,FRI FOR 28 DAYS
     Route: 065
     Dates: start: 20200410
  17. VITAMIN D2 [Concomitant]
     Active Substance: ERGOCALCIFEROL

REACTIONS (12)
  - Dry mouth [Unknown]
  - Crohn^s disease [Unknown]
  - Feeding disorder [Unknown]
  - Candida infection [Unknown]
  - Nausea [Unknown]
  - Asthenia [Unknown]
  - Weight decreased [Unknown]
  - Fatigue [Unknown]
  - Impaired quality of life [Unknown]
  - Malnutrition [Unknown]
  - Pain [Unknown]
  - Dehydration [Unknown]

NARRATIVE: CASE EVENT DATE: 20200412
